FAERS Safety Report 7372768-6 (Version None)
Quarter: 2011Q1

REPORT INFORMATION
  Report Type: 
  Country: None (occurrence: None)
  Receive Date: 20110315
  Receipt Date: 20110301
  Transmission Date: 20110831
  Serious: Yes (Other)
  Sender: FDA-Public Use
  Company Number: 028441

PATIENT
  Sex: Female
  Weight: 92 kg

DRUGS (11)
  1. NEBIVOLOL [Concomitant]
  2. CERTOLIZUMAB (CERTOLIZUMAB) [Suspect]
     Indication: RHEUMATOID ARTHRITIS
     Dosage: SUBCUTANEOUS
     Route: 058
     Dates: start: 20110104, end: 20110224
  3. CERTOLIZUMAB (CERTOLIZUMAB) [Suspect]
     Indication: RHEUMATOID ARTHRITIS
     Dosage: SUBCUTANEOUS
     Route: 058
     Dates: start: 20101207, end: 20101221
  4. CERTOLIZUMAB (CERTOLIZUMAB) [Suspect]
     Indication: RHEUMATOID ARTHRITIS
     Dosage: SUBCUTANEOUS
     Route: 058
     Dates: start: 20101101, end: 20101124
  5. PREDNISOLONE [Concomitant]
  6. VITAMIN D [Concomitant]
  7. TROMCARDIN [Concomitant]
  8. RAMIPRIL [Concomitant]
  9. HYDROCHLOROTHIAZIDE [Concomitant]
  10. ALLOBETA [Concomitant]
  11. ASPIRIN [Concomitant]

REACTIONS (2)
  - CEREBROVASCULAR ACCIDENT [None]
  - SPEECH DISORDER [None]
